FAERS Safety Report 13500618 (Version 2)
Quarter: 2017Q2

REPORT INFORMATION
  Report Type: Spontaneous
  Country: AR (occurrence: AR)
  Receive Date: 20170501
  Receipt Date: 20170511
  Transmission Date: 20170830
  Serious: Yes (Hospitalization, Other)
  Sender: FDA-Public Use
  Company Number: AR-ABBVIE-17P-007-1960057-00

PATIENT
  Age: 58 Year
  Sex: Male

DRUGS (4)
  1. DARUNAVIR [Suspect]
     Active Substance: DARUNAVIR
     Indication: HIV INFECTION
     Route: 065
  2. RALTEGRAVIR. [Suspect]
     Active Substance: RALTEGRAVIR
     Indication: HIV INFECTION
     Route: 065
  3. ETRAVIRINE [Suspect]
     Active Substance: ETRAVIRINE
     Indication: HIV INFECTION
     Route: 065
  4. NORVIR [Suspect]
     Active Substance: RITONAVIR
     Indication: HIV INFECTION
     Route: 065

REACTIONS (16)
  - Epstein-Barr virus infection [Unknown]
  - Lymphadenopathy [Unknown]
  - Pyrexia [Recovered/Resolved]
  - Pyrexia [Recovered/Resolved]
  - Lymphadenopathy mediastinal [Unknown]
  - Ascites [Unknown]
  - Castleman^s disease [Recovered/Resolved]
  - Splenomegaly [Unknown]
  - Pyrexia [Recovered/Resolved]
  - Lymphadenopathy [Unknown]
  - Lymphadenitis [Unknown]
  - Asthenia [Unknown]
  - Febrile neutropenia [Recovered/Resolved]
  - Castleman^s disease [Recovered/Resolved]
  - Human herpes virus 8 test positive [Recovered/Resolved]
  - CD4 lymphocytes decreased [Recovering/Resolving]

NARRATIVE: CASE EVENT DATE: 201203
